FAERS Safety Report 21708000 (Version 1)
Quarter: 2022Q4

REPORT INFORMATION
  Report Type: Report from Study
  Country: FR (occurrence: FR)
  Receive Date: 20221209
  Receipt Date: 20221209
  Transmission Date: 20230113
  Serious: Yes (Death, Other)
  Sender: FDA-Public Use
  Company Number: FR-JNJFOC-20200712242

PATIENT
  Age: 84 Year
  Sex: Female

DRUGS (3)
  1. DEXAMETHASONE [Suspect]
     Active Substance: DEXAMETHASONE
     Indication: Plasma cell myeloma
     Dosage: DEXAMETHASONE 20 MG/INTAKE 2 INTAKE (S)/WEEK 4 WEEK(S)/CYCLE
     Route: 065
     Dates: end: 20170915
  2. POMALIDOMIDE [Suspect]
     Active Substance: POMALIDOMIDE
     Indication: Plasma cell myeloma
     Dosage: POMALIDOMIDE 4 MG/INTAKE 7 INTAKE/WEEK 2 WEEK(S)/CYCLE
     Route: 065
     Dates: end: 20170915
  3. VELCADE [Suspect]
     Active Substance: BORTEZOMIB
     Indication: Plasma cell myeloma
     Dosage: BORTEZOMIB 1.8 MG/INTAKE 1 INTAKE/WEEK 4 WEEK(S)/CYCLE
     Route: 065
     Dates: end: 20170915

REACTIONS (4)
  - Plasma cell myeloma [Fatal]
  - Sepsis [Unknown]
  - Off label use [Unknown]
  - Product use issue [Unknown]

NARRATIVE: CASE EVENT DATE: 20170907
